FAERS Safety Report 7465915-9 (Version None)
Quarter: 2011Q2

REPORT INFORMATION
  Report Type: 
  Country: None (occurrence: None)
  Receive Date: 20110509
  Receipt Date: 20100505
  Transmission Date: 20111010
  Serious: No
  Sender: FDA-Public Use
  Company Number: US-ALEXION-A201000510

PATIENT
  Sex: Female

DRUGS (8)
  1. SOLIRIS [Suspect]
     Indication: PAROXYSMAL NOCTURNAL HAEMOGLOBINURIA
     Dosage: 600 MG, QW X 4 WEEKS
     Route: 042
     Dates: start: 20090330
  2. LEXAPRO [Concomitant]
     Indication: DEPRESSION
  3. EXJADE [Concomitant]
     Indication: BLOOD IRON INCREASED
     Dosage: 1000 MG, UNK
     Route: 048
     Dates: start: 20100401
  4. EXJADE [Concomitant]
     Dosage: 500 MG, OCCASIONALLY
     Route: 048
  5. FOLIC ACID [Concomitant]
     Indication: PAROXYSMAL NOCTURNAL HAEMOGLOBINURIA
     Dosage: 1 MG, QD
     Route: 048
  6. M.V.I. [Concomitant]
     Indication: SUPPLEMENTATION THERAPY
     Dosage: 1 TAB
     Route: 048
  7. LEXAPRO [Concomitant]
     Indication: ANXIETY
     Dosage: UNK
     Route: 048
  8. SOLIRIS [Suspect]
     Dosage: 900 MG, Q2W
     Route: 042
     Dates: start: 20090101

REACTIONS (7)
  - STRESS [None]
  - ANXIETY [None]
  - BLOOD IRON INCREASED [None]
  - DEPRESSION [None]
  - HAEMOGLOBIN DECREASED [None]
  - BLOOD URINE PRESENT [None]
  - ABDOMINAL PAIN [None]
